FAERS Safety Report 17973315 (Version 1)
Quarter: 2020Q3

REPORT INFORMATION
  Report Type: Spontaneous
  Country: US (occurrence: US)
  Receive Date: 20200701
  Receipt Date: 20200701
  Transmission Date: 20201103
  Serious: Yes (Hospitalization)
  Sender: FDA-Public Use
  Company Number: None

PATIENT
  Age: 65 Year
  Sex: Male

DRUGS (1)
  1. TEMOZOLOMIDE 5/100MG 180MG CAP [Suspect]
     Active Substance: TEMOZOLOMIDE
     Indication: BRAIN NEOPLASM MALIGNANT
     Dosage: OTHER DOSE:SEE SECTION B6;OTHER FREQUENCY:AS DIRECTED;?
     Route: 048
     Dates: start: 20191228

REACTIONS (3)
  - Cerebrovascular accident [None]
  - Therapy interrupted [None]
  - Product distribution issue [None]

NARRATIVE: CASE EVENT DATE: 20200630
